FAERS Safety Report 21450521 (Version 4)
Quarter: 2023Q2

REPORT INFORMATION
  Report Type: Spontaneous
  Country: US (occurrence: US)
  Receive Date: 20221013
  Receipt Date: 20230531
  Transmission Date: 20230721
  Serious: No
  Sender: FDA-Public Use
  Company Number: US-AMGEN-USASP2022172614

PATIENT
  Age: 57 Year
  Sex: Female

DRUGS (24)
  1. REPATHA [Suspect]
     Active Substance: EVOLOCUMAB
     Indication: Blood cholesterol increased
     Dosage: 140 MILLIGRAM, Q2WK
     Route: 058
     Dates: start: 2021
  2. REPATHA [Suspect]
     Active Substance: EVOLOCUMAB
     Dosage: 140 MILLIGRAM, Q2WK
     Route: 058
     Dates: start: 2021
  3. REPATHA [Suspect]
     Active Substance: EVOLOCUMAB
     Dosage: 140 MILLIGRAM, Q2WK
     Route: 058
     Dates: start: 2021
  4. REPATHA [Suspect]
     Active Substance: EVOLOCUMAB
     Dosage: 140 MILLIGRAM, Q2WK
     Route: 058
     Dates: start: 2021
  5. REPATHA [Suspect]
     Active Substance: EVOLOCUMAB
     Dosage: 140 MILLIGRAM, Q2WK
     Route: 058
     Dates: start: 2021
  6. REPATHA [Suspect]
     Active Substance: EVOLOCUMAB
     Dosage: UNK, Q2WK
     Route: 058
  7. REPATHA [Suspect]
     Active Substance: EVOLOCUMAB
     Route: 058
  8. REPATHA [Suspect]
     Active Substance: EVOLOCUMAB
     Route: 058
  9. REPATHA [Suspect]
     Active Substance: EVOLOCUMAB
     Route: 058
  10. REPATHA [Suspect]
     Active Substance: EVOLOCUMAB
     Route: 058
  11. REPATHA [Suspect]
     Active Substance: EVOLOCUMAB
     Route: 058
  12. REPATHA [Suspect]
     Active Substance: EVOLOCUMAB
     Route: 058
  13. REPATHA [Suspect]
     Active Substance: EVOLOCUMAB
     Route: 058
  14. REPATHA [Suspect]
     Active Substance: EVOLOCUMAB
     Route: 058
  15. REPATHA [Suspect]
     Active Substance: EVOLOCUMAB
     Route: 058
  16. REPATHA [Suspect]
     Active Substance: EVOLOCUMAB
     Route: 058
  17. REPATHA [Suspect]
     Active Substance: EVOLOCUMAB
     Route: 058
  18. REPATHA [Suspect]
     Active Substance: EVOLOCUMAB
     Route: 058
  19. REPATHA [Suspect]
     Active Substance: EVOLOCUMAB
     Route: 058
  20. REPATHA [Suspect]
     Active Substance: EVOLOCUMAB
     Route: 058
  21. REPATHA [Suspect]
     Active Substance: EVOLOCUMAB
     Route: 058
  22. REPATHA [Suspect]
     Active Substance: EVOLOCUMAB
     Route: 058
  23. REPATHA [Suspect]
     Active Substance: EVOLOCUMAB
     Route: 058
  24. REPATHA [Suspect]
     Active Substance: EVOLOCUMAB
     Route: 058

REACTIONS (3)
  - Accidental exposure to product [Unknown]
  - Device difficult to use [Unknown]
  - Drug dose omission by device [Unknown]

NARRATIVE: CASE EVENT DATE: 20221005
